FAERS Safety Report 12641169 (Version 1)
Quarter: 2016Q3

REPORT INFORMATION
  Report Type: Spontaneous
  Country: IT (occurrence: IT)
  Receive Date: 20160810
  Receipt Date: 20160810
  Transmission Date: 20161109
  Serious: Yes (Other)
  Sender: FDA-Public Use
  Company Number: IT-ASTRAZENECA-2016SE84117

PATIENT
  Age: 21723 Day
  Sex: Male
  Weight: 115 kg

DRUGS (7)
  1. INSPRA [Concomitant]
     Active Substance: EPLERENONE
     Dosage: 50.0MG UNKNOWN
     Route: 048
  2. PLAVIX [Concomitant]
     Active Substance: CLOPIDOGREL BISULFATE
     Dosage: 75.0MG UNKNOWN
     Route: 048
  3. CRESTOR [Suspect]
     Active Substance: ROSUVASTATIN CALCIUM
     Indication: HYPERCHOLESTEROLAEMIA
     Dosage: 20.0MG UNKNOWN
     Route: 048
     Dates: start: 20150730, end: 20160721
  4. VISKEN [Concomitant]
     Active Substance: PINDOLOL
     Dosage: 2.5MG UNKNOWN
     Route: 048
  5. ADALAT CRONO [Concomitant]
     Active Substance: NIFEDIPINE
     Indication: MYOCARDIAL ISCHAEMIA
     Dosage: 20.0MG UNKNOWN
     Route: 048
  6. ZYLORIC [Concomitant]
     Active Substance: ALLOPURINOL
     Indication: HYPERURICAEMIA
     Dosage: 300.0MG UNKNOWN
     Route: 048
  7. CARDIOASPIRIN [Concomitant]
     Active Substance: ASPIRIN
     Dosage: 100.0MG UNKNOWN
     Route: 048

REACTIONS (2)
  - Blood creatine phosphokinase increased [Unknown]
  - Musculoskeletal injury [Unknown]

NARRATIVE: CASE EVENT DATE: 20160721
